FAERS Safety Report 10918547 (Version 1)
Quarter: 2015Q1

REPORT INFORMATION
  Report Type: Spontaneous
  Country: US (occurrence: US)
  Receive Date: 20150316
  Receipt Date: 20150316
  Transmission Date: 20150721
  Serious: Yes (Other)
  Sender: FDA-Public Use
  Company Number: US-ASTELLAS-2015US001421

PATIENT
  Age: 91 Year
  Sex: Male

DRUGS (1)
  1. XTANDI [Suspect]
     Active Substance: ENZALUTAMIDE
     Indication: PROSTATE CANCER
     Route: 048
     Dates: start: 20150103, end: 20150107

REACTIONS (4)
  - Insomnia [Unknown]
  - Malaise [Unknown]
  - Fatigue [Unknown]
  - Hot flush [Unknown]

NARRATIVE: CASE EVENT DATE: 20150105
